FAERS Safety Report 7407491-2 (Version None)
Quarter: 2011Q2

REPORT INFORMATION
  Report Type: 
  Country: None (occurrence: None)
  Receive Date: 20110412
  Receipt Date: 20110330
  Transmission Date: 20111010
  Serious: Yes (Other)
  Sender: FDA-Public Use
  Company Number: SE-AMGEN-SWESP2011013684

PATIENT
  Age: 54 Year
  Sex: Female

DRUGS (4)
  1. ENBREL [Suspect]
     Indication: RHEUMATOID ARTHRITIS
     Dosage: 25 MG, WEEKLY
     Route: 058
     Dates: start: 20040201
  2. PROPAVAN [Concomitant]
     Indication: SLEEP DISORDER
     Dosage: 25 MG, 1X/DAYAT NIGHT
  3. SOBRIL [Concomitant]
     Indication: ANXIETY
     Dosage: 15 MG, AS NEEDED
     Route: 048
  4. BRUFEN                             /00109201/ [Concomitant]
     Indication: PAIN
     Dosage: 400 MG, 1X/DAY
     Route: 048

REACTIONS (2)
  - BLOOD PRESSURE INCREASED [None]
  - HERPES VIRUS INFECTION [None]
